FAERS Safety Report 7983809-7 (Version None)
Quarter: 2011Q4

REPORT INFORMATION
  Report Type: 
  Country: None (occurrence: None)
  Receive Date: 20111216
  Receipt Date: 20111208
  Transmission Date: 20120403
  Serious: Yes (Hospitalization)
  Sender: FDA-Public Use
  Company Number: US-BIOGENIDEC-2011BI014093

PATIENT
  Age: 33 Year
  Sex: Male

DRUGS (1)
  1. TYSABRI [Suspect]
     Indication: MULTIPLE SCLEROSIS
     Route: 042
     Dates: start: 20070911, end: 20110107

REACTIONS (4)
  - INTRACRANIAL ANEURYSM [None]
  - HEPATIC STEATOSIS [None]
  - VITAMIN D DEFICIENCY [None]
  - HYPOAESTHESIA [None]
